FAERS Safety Report 21448248 (Version 1)
Quarter: 2022Q4

REPORT INFORMATION
  Report Type: Report from Study
  Country: RO (occurrence: RO)
  Receive Date: 20221012
  Receipt Date: 20221012
  Transmission Date: 20230113
  Serious: Yes (Hospitalization, Other)
  Sender: FDA-Public Use
  Company Number: RO-ABBVIE-4150881

PATIENT
  Age: 73 Year
  Sex: Female

DRUGS (16)
  1. GLECAPREVIR\PIBRENTASVIR [Suspect]
     Active Substance: GLECAPREVIR\PIBRENTASVIR
     Indication: Chronic hepatitis C
     Dosage: 300 MG/120 MG
     Route: 048
     Dates: start: 20220920
  2. ATORVASTATIN [Concomitant]
     Active Substance: ATORVASTATIN
     Indication: Product used for unknown indication
     Dosage: 1 TABLET?STRENGTH: 20 MG
     Route: 048
     Dates: start: 20221006
  3. GAVISCON [Concomitant]
     Active Substance: ALUMINUM HYDROXIDE\MAGNESIUM CARBONATE
     Indication: Product used for unknown indication
     Dosage: 3 SACHET
     Route: 048
     Dates: start: 20221006
  4. METOCLOPRAMIDE [Concomitant]
     Active Substance: METOCLOPRAMIDE
     Indication: Product used for unknown indication
     Dosage: TIME INTERVAL: AS NECESSARY: 2 TABLET
     Route: 048
     Dates: start: 20221006
  5. Urisan [Concomitant]
     Indication: Product used for unknown indication
     Dosage: 2 TABLET
     Route: 048
     Dates: start: 20221002
  6. DIGOXIN [Concomitant]
     Active Substance: DIGOXIN
     Indication: Product used for unknown indication
     Dosage: 1 TABLET?WITH PAUSE ON THURSDAYS AND SUNDAYS?STRENGTH: 0.25 MG
     Route: 048
     Dates: start: 20221006
  7. PERINDOPRIL [Concomitant]
     Active Substance: PERINDOPRIL
     Indication: Product used for unknown indication
     Dosage: 1 TABLET?STRENGTH 10 MG
     Route: 048
     Dates: start: 20221006
  8. XARELTO [Concomitant]
     Active Substance: RIVAROXABAN
     Indication: Product used for unknown indication
     Dosage: 1 TABLET?STRENGTH: 20 MG
     Route: 048
     Dates: start: 20221006
  9. BISOPROLOL FUMARATE [Concomitant]
     Active Substance: BISOPROLOL FUMARATE
     Indication: Product used for unknown indication
     Dosage: 1 TABLET?STRENGTH 5 MG
     Route: 048
     Dates: start: 20221006
  10. CONTROLOC [Concomitant]
     Active Substance: PANTOPRAZOLE SODIUM
     Indication: Product used for unknown indication
     Dosage: 2 TABLET?STRENGTH: 40 MG
     Route: 048
     Dates: start: 20221006
  11. Amoxiplus [Concomitant]
     Indication: Product used for unknown indication
     Dosage: 2 TABLET
     Route: 048
     Dates: start: 20221002
  12. Diurex [Concomitant]
     Indication: Product used for unknown indication
     Dosage: 1 TABLET?50/20 MG
     Route: 048
     Dates: start: 20221006
  13. MONURAL [Concomitant]
     Indication: Product used for unknown indication
     Route: 048
     Dates: start: 20221006
  14. RILMENIDINE [Concomitant]
     Active Substance: RILMENIDINE
     Indication: Blood pressure management
     Dosage: 1 TABLET?STRENGTH: 1 MG
     Route: 048
     Dates: start: 20221006
  15. IBUTIN [Concomitant]
     Indication: Product used for unknown indication
     Dosage: 1 TABLET?STRENGTH: 300 MG
     Route: 048
     Dates: start: 20221006
  16. Bio sun [Concomitant]
     Indication: Product used for unknown indication
     Dosage: 3 TABLET
     Route: 048
     Dates: start: 20221002

REACTIONS (35)
  - Dyspnoea at rest [Recovering/Resolving]
  - Gastric mucosa erythema [Unknown]
  - Pleurisy [Recovering/Resolving]
  - Mitral valve incompetence [Recovering/Resolving]
  - Essential hypertension [Unknown]
  - Exercise tolerance decreased [Recovering/Resolving]
  - Diabetes mellitus [Unknown]
  - Diet noncompliance [Unknown]
  - Renal cyst [Unknown]
  - Spinal osteoarthritis [Unknown]
  - Normochromic anaemia [Unknown]
  - Palpitations [Recovering/Resolving]
  - Flatulence [Unknown]
  - Cardiomegaly [Recovering/Resolving]
  - Lymphadenopathy mediastinal [Unknown]
  - Heart sounds abnormal [Recovering/Resolving]
  - Pallor [Recovering/Resolving]
  - Fatigue [Recovering/Resolving]
  - Candida infection [Recovering/Resolving]
  - Intervertebral disc compression [Unknown]
  - Aortic valve incompetence [Unknown]
  - Pleural effusion [Recovering/Resolving]
  - Tricuspid valve incompetence [Recovering/Resolving]
  - Escherichia urinary tract infection [Recovering/Resolving]
  - Atrial fibrillation [Recovering/Resolving]
  - Dyslipidaemia [Unknown]
  - Left atrial dilatation [Recovering/Resolving]
  - Electrolyte imbalance [Unknown]
  - Mucosal discolouration [Recovering/Resolving]
  - Aspergillus infection [Recovering/Resolving]
  - Hypertensive cardiomyopathy [Unknown]
  - Pulmonary hypertension [Unknown]
  - Gastrooesophageal reflux disease [Unknown]
  - Asthenia [Recovering/Resolving]
  - Gastritis erosive [Unknown]

NARRATIVE: CASE EVENT DATE: 20221002
